FAERS Safety Report 17505056 (Version 2)
Quarter: 2020Q1

REPORT INFORMATION
  Report Type: Spontaneous
  Country: HU (occurrence: HU)
  Receive Date: 20200305
  Receipt Date: 20200327
  Transmission Date: 20200409
  Serious: Yes (Other)
  Sender: FDA-Public Use
  Company Number: NVSC2020HU050400

PATIENT
  Sex: Female

DRUGS (8)
  1. NEBIBETA [Suspect]
     Active Substance: NEBIVOLOL HYDROCHLORIDE
     Indication: PRODUCT USED FOR UNKNOWN INDICATION
     Dosage: UNK
     Route: 065
  2. EUCREAS [Suspect]
     Active Substance: METFORMIN HYDROCHLORIDE\VILDAGLIPTIN
     Indication: TYPE 2 DIABETES MELLITUS
     Dosage: UNK UNK, BID
     Route: 048
     Dates: start: 2019, end: 20200210
  3. COGNIT [Suspect]
     Active Substance: PIRACETAM
     Indication: POOR PERIPHERAL CIRCULATION
     Dosage: UNK
     Route: 065
     Dates: start: 2019
  4. MILURIT [Suspect]
     Active Substance: ALLOPURINOL
     Indication: BLOOD URIC ACID ABNORMAL
     Dosage: UNK
     Route: 065
  5. VALONGIX [Suspect]
     Active Substance: AMLODIPINE\ATORVASTATIN\PERINDOPRIL
     Indication: PRODUCT USED FOR UNKNOWN INDICATION
     Dosage: UNK
     Route: 065
     Dates: start: 2019
  6. ADIMET [Suspect]
     Active Substance: METFORMIN HYDROCHLORIDE
     Indication: PRODUCT USED FOR UNKNOWN INDICATION
     Dosage: UNK
     Route: 065
  7. KERBERAN [Suspect]
     Active Substance: CLOPIDOGREL BESILATE
     Indication: PRODUCT USED FOR UNKNOWN INDICATION
     Dosage: UNK
     Route: 065
     Dates: start: 2019
  8. NARVA [Suspect]
     Active Substance: INDAPAMIDE
     Indication: PRODUCT USED FOR UNKNOWN INDICATION
     Dosage: UNK
     Route: 065

REACTIONS (14)
  - Depression [Unknown]
  - Diabetic complication [Unknown]
  - Memory impairment [Unknown]
  - Psychotic disorder [Unknown]
  - Pruritus [Unknown]
  - Diabetic eye disease [Unknown]
  - Confusional state [Unknown]
  - Erythema [Unknown]
  - Nausea [Unknown]
  - Decreased appetite [Unknown]
  - Dementia [Unknown]
  - Abdominal pain upper [Unknown]
  - Dementia Alzheimer^s type [Unknown]
  - Abdominal discomfort [Unknown]

NARRATIVE: CASE EVENT DATE: 2019
